FAERS Safety Report 6608517-6 (Version None)
Quarter: 2010Q1

REPORT INFORMATION
  Report Type: 
  Country: None (occurrence: None)
  Receive Date: 20100301
  Receipt Date: 20091019
  Transmission Date: 20100710
  Serious: Yes (Other)
  Sender: FDA-Public Use
  Company Number: FR-ASTRAZENECA-2009CG01243

PATIENT
  Sex: Female

DRUGS (28)
  1. NEXIUM [Suspect]
     Route: 048
     Dates: start: 20080613, end: 20080821
  2. NEXIUM [Suspect]
     Route: 048
     Dates: start: 20080822, end: 20081217
  3. ATARAX [Suspect]
     Route: 048
     Dates: start: 20080818, end: 20081217
  4. ANTIBIOTREX [Suspect]
     Route: 065
     Dates: start: 20080829, end: 20080916
  5. AMLOR [Suspect]
     Route: 065
     Dates: start: 20080620, end: 20080916
  6. AMLOR [Suspect]
     Route: 065
     Dates: start: 20080917, end: 20081215
  7. ARANESP [Suspect]
     Route: 065
     Dates: start: 20080727, end: 20080928
  8. ARANESP [Suspect]
     Route: 065
     Dates: start: 20080929, end: 20081217
  9. IMUREL [Suspect]
     Route: 048
     Dates: start: 20080613, end: 20080821
  10. IMUREL [Suspect]
     Route: 048
     Dates: start: 20080822, end: 20080905
  11. IMUREL [Suspect]
     Route: 048
     Dates: start: 20080906, end: 20080916
  12. KAYEXALATE [Suspect]
     Route: 065
     Dates: start: 20080613, end: 20080804
  13. KAYEXALATE [Suspect]
     Route: 065
     Dates: start: 20080805, end: 20081115
  14. LASILIX [Suspect]
     Route: 065
     Dates: start: 20080613, end: 20081215
  15. MUCOMYST [Suspect]
     Route: 065
     Dates: start: 20081107, end: 20081110
  16. NEORAL [Suspect]
     Route: 065
     Dates: end: 20081021
  17. NEORAL [Suspect]
     Route: 065
     Dates: start: 20081022, end: 20081105
  18. NEORAL [Suspect]
     Route: 065
     Dates: start: 20081105, end: 20081217
  19. CEFPODOXIME PROXETIL [Suspect]
     Route: 065
     Dates: start: 20081107, end: 20081117
  20. PIVALONE [Suspect]
     Route: 065
     Dates: start: 20081031, end: 20081107
  21. RENAGEL [Suspect]
     Route: 065
     Dates: start: 20080828, end: 20081215
  22. RHINOFLUIMUCIL [Suspect]
     Route: 065
     Dates: start: 20081107, end: 20081110
  23. RUBOZINC [Suspect]
     Route: 048
     Dates: start: 20080829, end: 20080916
  24. SPECIAFOLDINE [Suspect]
     Route: 065
     Dates: start: 20081008, end: 20081217
  25. UN-ALFA [Suspect]
     Route: 065
     Dates: start: 20080704, end: 20081017
  26. VENOFER [Suspect]
     Route: 042
     Dates: start: 20080613, end: 20081016
  27. VENOFER [Suspect]
     Route: 042
     Dates: start: 20081017, end: 20081214
  28. VENOFER [Suspect]
     Route: 042
     Dates: start: 20081215, end: 20081217

REACTIONS (4)
  - DRUG EXPOSURE DURING PREGNANCY [None]
  - HAEMODIALYSIS [None]
  - PREGNANCY [None]
  - STILLBIRTH [None]
